FAERS Safety Report 24395525 (Version 2)
Quarter: 2024Q4

REPORT INFORMATION
  Report Type: Spontaneous
  Country: ES (occurrence: ES)
  Receive Date: 20241004
  Receipt Date: 20241221
  Transmission Date: 20250115
  Serious: Yes (Hospitalization, Other)
  Sender: AUROBINDO
  Company Number: ES-002147023-NVSC2023ES228934

PATIENT
  Age: 75 Year
  Sex: Male
  Weight: 67 kg

DRUGS (19)
  1. IRINOTECAN [Suspect]
     Active Substance: IRINOTECAN
     Indication: Colorectal cancer metastatic
     Dosage: 318.96 MILLIGRAM, EVERY 2 WEEKS
     Route: 042
     Dates: start: 20230427, end: 20231011
  2. IRINOTECAN [Suspect]
     Active Substance: IRINOTECAN
     Dosage: 180 MILLIGRAM, EVERY 2 WEEKS
     Route: 042
     Dates: start: 20231109
  3. FLUOROURACIL [Suspect]
     Active Substance: FLUOROURACIL
     Indication: Colorectal cancer metastatic
     Dosage: 4252.8 MILLIGRAM, EVERY 2 WEEKS
     Route: 042
     Dates: start: 20230427, end: 20231011
  4. FLUOROURACIL [Suspect]
     Active Substance: FLUOROURACIL
     Dosage: 708.8 MILLIGRAM, EVERY 2 WEEKS
     Route: 042
     Dates: start: 20230427, end: 20231011
  5. FLUOROURACIL [Suspect]
     Active Substance: FLUOROURACIL
     Dosage: 2400 MILLIGRAM, EVERY 2 WEEKS
     Route: 042
     Dates: start: 20231109
  6. FLUOROURACIL [Suspect]
     Active Substance: FLUOROURACIL
     Dosage: 400 MILLIGRAM, EVERY 2 WEEKS
     Route: 042
     Dates: start: 20231109
  7. LEUCOVORIN [Suspect]
     Active Substance: LEUCOVORIN\LEUCOVORIN CALCIUM
     Indication: Colorectal cancer metastatic
     Dosage: 708.8 MILLIGRAM, EVERY 2 WEEKS
     Route: 042
     Dates: start: 20230427, end: 20231011
  8. LEUCOVORIN [Suspect]
     Active Substance: LEUCOVORIN\LEUCOVORIN CALCIUM
     Dosage: 400 MILLIGRAM, EVERY 2 WEEKS
     Route: 042
     Dates: start: 20231109
  9. BEVACIZUMAB [Suspect]
     Active Substance: BEVACIZUMAB
     Indication: Colorectal cancer metastatic
     Dosage: 340 MILLIGRAM, EVERY 2 WEEKS
     Route: 042
     Dates: start: 20240427, end: 20241011
  10. BEVACIZUMAB [Suspect]
     Active Substance: BEVACIZUMAB
     Dosage: 5 MILLIGRAM,EVERY 2 WEEKS
     Route: 042
     Dates: start: 20241109
  11. TISLELIZUMAB [Suspect]
     Active Substance: TISLELIZUMAB
     Indication: Colorectal cancer metastatic
     Dosage: 300 MILLIGRAM
     Route: 042
     Dates: start: 20240427
  12. BILASTINE [Concomitant]
     Active Substance: BILASTINE
     Indication: General physical condition
     Dosage: UNK
     Route: 065
  13. CLOBETASOL PROPIONATE [Concomitant]
     Active Substance: CLOBETASOL PROPIONATE
     Indication: General physical condition
     Dosage: UNK
     Route: 065
  14. GLICLAZIDE [Concomitant]
     Active Substance: GLICLAZIDE
     Indication: Diabetes mellitus
     Dosage: UNK
     Route: 065
  15. INSULIN GLARGINE [Concomitant]
     Active Substance: INSULIN GLARGINE
     Indication: Diabetes mellitus
     Dosage: UNK
     Route: 065
  16. METAMIZOLE [Concomitant]
     Active Substance: METAMIZOLE
     Indication: General physical condition
     Dosage: UNK
     Route: 065
  17. METFORMIN [Concomitant]
     Active Substance: METFORMIN HYDROCHLORIDE
     Indication: Diabetes mellitus
     Dosage: UNK
     Route: 065
  18. SIMVASTATIN [Concomitant]
     Active Substance: SIMVASTATIN
     Indication: Hypertension
     Dosage: UNK
     Route: 065
  19. GLICLAZIDE [Concomitant]
     Active Substance: GLICLAZIDE
     Indication: Diabetes mellitus
     Dosage: UNK
     Route: 065

REACTIONS (1)
  - Febrile neutropenia [Recovered/Resolved]

NARRATIVE: CASE EVENT DATE: 20231021
